FAERS Safety Report 11285976 (Version 1)
Quarter: 2015Q3

REPORT INFORMATION
  Report Type: Spontaneous
  Country: US (occurrence: US)
  Receive Date: 20150721
  Receipt Date: 20150721
  Transmission Date: 20151125
  Serious: No
  Sender: FDA-Public Use
  Company Number: US-UNITED THERAPEUTICS-UNT-2015-000666

PATIENT
  Sex: Male
  Weight: 78.5 kg

DRUGS (2)
  1. ORENITRAM [Suspect]
     Active Substance: TREPROSTINIL
     Indication: PULMONARY ARTERIAL HYPERTENSION
     Dosage: 3 MG, TID
     Route: 048
     Dates: start: 20141220
  2. ORENITRAM [Suspect]
     Active Substance: TREPROSTINIL
     Dosage: UNK
     Dates: start: 20141220

REACTIONS (8)
  - Nausea [Unknown]
  - Paraesthesia [Unknown]
  - Polycythaemia [Unknown]
  - Pain in jaw [Unknown]
  - Dizziness [Unknown]
  - Adverse event [Unknown]
  - Pain in extremity [Unknown]
  - Temporomandibular joint syndrome [Unknown]
